FAERS Safety Report 11958955 (Version 1)
Quarter: 2016Q1

REPORT INFORMATION
  Report Type: Spontaneous
  Country: US (occurrence: US)
  Receive Date: 20160126
  Receipt Date: 20160126
  Transmission Date: 20160526
  Serious: No
  Sender: FDA-Public Use
  Company Number: US-DEXPHARM-20151103

PATIENT
  Age: 63 Year
  Sex: Female
  Weight: 49.89 kg

DRUGS (5)
  1. CARBIDOPA W/LEVODOPA [Concomitant]
     Active Substance: CARBIDOPA\LEVODOPA
     Indication: RESTLESS LEGS SYNDROME
     Dosage: UNK
     Route: 065
     Dates: start: 2009
  2. GENTAMICIN. [Concomitant]
     Active Substance: GENTAMICIN
     Indication: NASAL DISORDER
     Dosage: UNK
     Route: 065
     Dates: start: 2014
  3. NASONEX [Concomitant]
     Active Substance: MOMETASONE FUROATE
     Indication: NASAL DISORDER
     Dosage: UNK
     Route: 065
     Dates: start: 2011
  4. OMEPRAZOLE DELAYED RELEASE [Suspect]
     Active Substance: OMEPRAZOLE
     Indication: GASTROOESOPHAGEAL REFLUX DISEASE
     Dosage: 20 MG, SINGLE
     Route: 048
     Dates: start: 20150307, end: 20150307
  5. METOPROLOL. [Concomitant]
     Active Substance: METOPROLOL
     Indication: HYPERTENSION
     Dosage: 50 MG
     Route: 065
     Dates: start: 2011

REACTIONS (3)
  - Abdominal pain upper [Recovered/Resolved]
  - Diarrhoea [Recovered/Resolved]
  - Palpitations [Recovered/Resolved]

NARRATIVE: CASE EVENT DATE: 20150307
